FAERS Safety Report 10501074 (Version 1)
Quarter: 2014Q4

REPORT INFORMATION
  Report Type: Spontaneous
  Country: PK (occurrence: None)
  Receive Date: 20141003
  Receipt Date: 20141003
  Transmission Date: 20150528
  Serious: Yes (Other)
  Sender: FDA-Public Use
  Company Number: None

PATIENT
  Age: 30 Year
  Sex: Male
  Weight: 76 kg

DRUGS (2)
  1. MOXIGET [Suspect]
     Active Substance: MOXIFLOXACIN
     Indication: SNEEZING
     Route: 048
     Dates: start: 20141001, end: 20141002
  2. MOXIGET [Suspect]
     Active Substance: MOXIFLOXACIN
     Indication: INFLUENZA
     Route: 048
     Dates: start: 20141001, end: 20141002

REACTIONS (1)
  - Pain [None]

NARRATIVE: CASE EVENT DATE: 20141002
